FAERS Safety Report 22612783 (Version 1)
Quarter: 2023Q2

REPORT INFORMATION
  Report Type: Spontaneous
  Country: US (occurrence: US)
  Receive Date: 20230617
  Receipt Date: 20230617
  Transmission Date: 20230722
  Serious: Yes (Other)
  Sender: FDA-Public Use
  Company Number: US-SUN PHARMACEUTICAL INDUSTRIES LTD-2023R1-395232

PATIENT
  Age: 55 Year
  Sex: Female

DRUGS (2)
  1. HYDROXYCHLOROQUINE [Suspect]
     Active Substance: HYDROXYCHLOROQUINE
     Indication: Serositis
     Dosage: UNK
     Route: 065
  2. PREDNISONE [Suspect]
     Active Substance: PREDNISONE
     Indication: Serositis
     Dosage: UNK
     Route: 048

REACTIONS (2)
  - Disease progression [Unknown]
  - Treatment failure [Unknown]
